FAERS Safety Report 8017420-9 (Version None)
Quarter: 2012Q1

REPORT INFORMATION
  Report Type: 
  Country: None (occurrence: None)
  Receive Date: 20120102
  Receipt Date: 20111213
  Transmission Date: 20120608
  Serious: Yes (Hospitalization, Other)
  Sender: FDA-Public Use
  Company Number: PHHO2008FR05765

PATIENT
  Sex: Female
  Weight: 50 kg

DRUGS (2)
  1. FTY [Suspect]
     Indication: MULTIPLE SCLEROSIS
     Dosage: CODE NOT BROKEN
     Route: 048
     Dates: start: 20070410, end: 20080504
  2. MEDROL [Suspect]

REACTIONS (27)
  - VIRAL INFECTION [None]
  - CSF TEST ABNORMAL [None]
  - LEUKOPENIA [None]
  - PYREXIA [None]
  - MACULE [None]
  - ASPARTATE AMINOTRANSFERASE INCREASED [None]
  - RESPIRATORY ALKALOSIS [None]
  - HERPES ZOSTER [None]
  - BLISTER [None]
  - PRURITUS [None]
  - NASOPHARYNGITIS [None]
  - NEUTROPENIA [None]
  - LYMPHOPENIA [None]
  - FATIGUE [None]
  - HEADACHE [None]
  - ASTHENIA [None]
  - PAPULE [None]
  - HERPES VIRUS INFECTION [None]
  - DYSPNOEA [None]
  - INFLAMMATION [None]
  - HYPERVENTILATION [None]
  - RASH PUSTULAR [None]
  - ALANINE AMINOTRANSFERASE INCREASED [None]
  - PULMONARY MASS [None]
  - BRONCHIAL WALL THICKENING [None]
  - ANXIETY [None]
  - DYSARTHRIA [None]
